FAERS Safety Report 5124508-9 (Version None)
Quarter: 2006Q3

REPORT INFORMATION
  Report Type: 
  Country: None (occurrence: None)
  Receive Date: 20060821
  Receipt Date: 20060622
  Transmission Date: 20061208
  Serious: No
  Sender: FDA-Public Use
  Company Number: TPA2006A01057

PATIENT
  Sex: 0

DRUGS (2)
  1. ROZEREM [Suspect]
     Indication: DRUG USE FOR UNKNOWN INDICATION
  2. XANAX [Concomitant]

REACTIONS (1)
  - DRUG INEFFECTIVE [None]
